FAERS Safety Report 24450772 (Version 2)
Quarter: 2024Q4

REPORT INFORMATION
  Report Type: Spontaneous
  Country: ES (occurrence: ES)
  Receive Date: 20241017
  Receipt Date: 20241029
  Transmission Date: 20250115
  Serious: Yes (Other)
  Sender: PFIZER
  Company Number: ES-SAMSUNG BIOEPIS-SB-2024-29761

PATIENT
  Age: 57 Year
  Sex: Female

DRUGS (2)
  1. BEVACIZUMAB [Suspect]
     Active Substance: BEVACIZUMAB
     Indication: Colorectal cancer metastatic
     Dosage: UNK
  2. FLUOROURACIL\LEUCOVORIN CALCIUM\OXALIPLATIN [Concomitant]
     Active Substance: FLUOROURACIL\LEUCOVORIN CALCIUM\OXALIPLATIN
     Indication: Colorectal cancer metastatic
     Dosage: UNK

REACTIONS (4)
  - Shock haemorrhagic [Unknown]
  - Haemodynamic instability [Unknown]
  - Duodenal ulcer [Unknown]
  - Aortoenteric fistula [Unknown]
